FAERS Safety Report 20247341 (Version 2)
Quarter: 2022Q1

REPORT INFORMATION
  Report Type: Spontaneous
  Country: PL (occurrence: PL)
  Receive Date: 20211229
  Receipt Date: 20220124
  Transmission Date: 20220424
  Serious: Yes (Death, Other)
  Sender: FDA-Public Use
  Company Number: PL-PFIZER INC-202101818208

PATIENT
  Sex: Female

DRUGS (1)
  1. XALKORI [Suspect]
     Active Substance: CRIZOTINIB
     Indication: Non-small cell lung cancer
     Dosage: UNK

REACTIONS (6)
  - Neoplasm progression [Fatal]
  - Hepatic enzyme increased [Fatal]
  - Renal failure [Fatal]
  - Psychotic symptom [Unknown]
  - Confusional state [Unknown]
  - Memory impairment [Unknown]
